FAERS Safety Report 25218554 (Version 3)
Quarter: 2025Q2

REPORT INFORMATION
  Report Type: Spontaneous
  Country: US (occurrence: US)
  Receive Date: 20250421
  Receipt Date: 20250618
  Transmission Date: 20250717
  Serious: No
  Sender: ROCHE
  Company Number: US-ROCHE-10000259975

PATIENT
  Age: 46 Year
  Sex: Male

DRUGS (5)
  1. RITUXIMAB [Suspect]
     Active Substance: RITUXIMAB
     Indication: Thrombotic thrombocytopenic purpura
     Route: 042
  2. CAPLACIZUMAB [Suspect]
     Active Substance: CAPLACIZUMAB
     Indication: Thrombotic thrombocytopenic purpura
     Route: 058
     Dates: start: 20240211
  3. CAPLACIZUMAB [Suspect]
     Active Substance: CAPLACIZUMAB
     Route: 065
     Dates: start: 20250131
  4. CAPLACIZUMAB [Suspect]
     Active Substance: CAPLACIZUMAB
     Route: 065
     Dates: start: 20250212
  5. TRUXIMA [Suspect]
     Active Substance: RITUXIMAB-ABBS
     Indication: Thrombotic thrombocytopenic purpura
     Route: 065

REACTIONS (9)
  - Condition aggravated [Unknown]
  - Contusion [Unknown]
  - Platelet count decreased [Unknown]
  - Traumatic haemorrhage [Recovered/Resolved]
  - Contusion [Recovered/Resolved]
  - Poor quality sleep [Unknown]
  - Pollakiuria [Unknown]
  - Asthenia [Unknown]
  - Fatigue [Unknown]
